FAERS Safety Report 9610967 (Version 2)
Quarter: 2013Q4

REPORT INFORMATION
  Report Type: Spontaneous
  Country: US (occurrence: US)
  Receive Date: 20131009
  Receipt Date: 20131030
  Transmission Date: 20140711
  Serious: Yes (Hospitalization)
  Sender: FDA-Public Use
  Company Number: US-MILLENNIUM PHARMACEUTICALS, INC.-2013MPI000525

PATIENT
  Age: 31 Year
  Sex: Female
  Weight: 123 kg

DRUGS (5)
  1. VELCADE [Suspect]
     Indication: EVANS SYNDROME
     Dosage: 2.6 MG, 1/WEEK
     Route: 058
     Dates: start: 20130121, end: 20130809
  2. RITUXAN [Concomitant]
     Dosage: 900 MG, UNK
     Dates: end: 20130816
  3. PARACETAMOL [Concomitant]
     Dosage: 650 MG, UNK
     Route: 048
  4. BENADRYL                           /00000402/ [Concomitant]
     Dosage: 20 MG, UNK
  5. DECADRON                           /00016001/ [Concomitant]
     Dosage: 10 MG, UNK

REACTIONS (2)
  - Subcutaneous abscess [Unknown]
  - Off label use [Unknown]
